FAERS Safety Report 8508154-2 (Version None)
Quarter: 2012Q2

REPORT INFORMATION
  Report Type: 
  Country: None (occurrence: None)
  Receive Date: 20120405
  Receipt Date: 20090616
  Transmission Date: 20120825
  Serious: Yes (Other)
  Sender: FDA-Public Use
  Company Number: PHEH2009US04043

PATIENT
  Age: 71 Year
  Sex: Female

DRUGS (3)
  1. LORAZEPAM [Concomitant]
  2. RECLAST [Suspect]
     Indication: SENILE OSTEOPOROSIS
     Dosage: 5 MG, ONCE, INFUSION
     Dates: start: 20090415
  3. BENICAR HCT [Concomitant]

REACTIONS (7)
  - HEADACHE [None]
  - MUSCULAR WEAKNESS [None]
  - MYALGIA [None]
  - BONE PAIN [None]
  - GAIT DISTURBANCE [None]
  - ARTHRALGIA [None]
  - PYREXIA [None]
